FAERS Safety Report 12021822 (Version 1)
Quarter: 2016Q1

REPORT INFORMATION
  Report Type: Spontaneous
  Country: US (occurrence: US)
  Receive Date: 20160206
  Receipt Date: 20160206
  Transmission Date: 20160526
  Serious: Yes (Other)
  Sender: FDA-Public Use
  Company Number: US-ABBVIE-15K-163-1470629-00

PATIENT
  Age: 70 Year
  Sex: Female

DRUGS (2)
  1. HUMIRA [Suspect]
     Active Substance: ADALIMUMAB
     Indication: PITYRIASIS RUBRA PILARIS
  2. HUMIRA [Suspect]
     Active Substance: ADALIMUMAB
     Indication: OFF LABEL USE
     Route: 058
     Dates: start: 2014

REACTIONS (2)
  - Off label use [Unknown]
  - Breast cancer female [Unknown]

NARRATIVE: CASE EVENT DATE: 2015
